FAERS Safety Report 7656865-3 (Version None)
Quarter: 2011Q3

REPORT INFORMATION
  Report Type: 
  Country: None (occurrence: None)
  Receive Date: 20110804
  Receipt Date: 20110727
  Transmission Date: 20111222
  Serious: Yes (Other)
  Sender: FDA-Public Use
  Company Number: US-US-EMD SERONO, INC.-7067437

PATIENT
  Sex: Female
  Weight: 63 kg

DRUGS (5)
  1. BUCET [Concomitant]
     Indication: HEADACHE
     Dosage: 50/650
     Dates: start: 20110201
  2. ASPIRIN [Concomitant]
     Indication: BLOOD CHOLESTEROL INCREASED
     Dates: start: 20110201
  3. ZANAFLEX [Concomitant]
     Indication: MUSCLE SPASMS
     Dates: start: 20110501
  4. ZOCOR [Concomitant]
     Indication: BLOOD CHOLESTEROL INCREASED
     Dates: start: 20110201
  5. REBIF [Suspect]
     Indication: MULTIPLE SCLEROSIS
     Route: 058
     Dates: start: 20110517

REACTIONS (2)
  - CHEST DISCOMFORT [None]
  - THYROID NEOPLASM [None]
